FAERS Safety Report 25463687 (Version 1)
Quarter: 2025Q2

REPORT INFORMATION
  Report Type: Spontaneous
  Country: US (occurrence: US)
  Receive Date: 20250621
  Receipt Date: 20250621
  Transmission Date: 20250716
  Serious: Yes (Hospitalization, Other)
  Sender: UNITED THERAPEUTICS
  Company Number: US-UNITED THERAPEUTICS-UNT-2024-036470

PATIENT
  Age: 42 Year
  Sex: Female

DRUGS (17)
  1. REMODULIN [Concomitant]
     Active Substance: TREPROSTINIL
     Indication: Heritable pulmonary arterial hypertension
  2. REMODULIN [Concomitant]
     Active Substance: TREPROSTINIL
  3. REMODULIN [Concomitant]
     Active Substance: TREPROSTINIL
  4. REMODULIN [Concomitant]
     Active Substance: TREPROSTINIL
  5. REMODULIN [Suspect]
     Active Substance: TREPROSTINIL
     Indication: Heritable pulmonary arterial hypertension
  6. REMODULIN [Suspect]
     Active Substance: TREPROSTINIL
  7. ORENITRAM [Suspect]
     Active Substance: TREPROSTINIL
     Indication: Heritable pulmonary arterial hypertension
     Dosage: UNK (8-10 MG), TID
     Dates: start: 2024
  8. ORENITRAM [Suspect]
     Active Substance: TREPROSTINIL
     Dosage: 12 MG, TID (2 TABLET OF 5 MG AND 2 TABLET OF 1 MG)
     Dates: start: 2024
  9. ORENITRAM [Suspect]
     Active Substance: TREPROSTINIL
     Dosage: 6 MG, TID
     Dates: start: 2024
  10. ORENITRAM [Suspect]
     Active Substance: TREPROSTINIL
     Dosage: 5 MG, TID
  11. ORENITRAM [Suspect]
     Active Substance: TREPROSTINIL
  12. ORENITRAM [Suspect]
     Active Substance: TREPROSTINIL
     Indication: Heritable pulmonary arterial hypertension
  13. ORENITRAM [Suspect]
     Active Substance: TREPROSTINIL
     Indication: Heritable pulmonary arterial hypertension
  14. TYLENOL [Suspect]
     Active Substance: ACETAMINOPHEN
     Indication: Headache
  15. ADVIL [Suspect]
     Active Substance: IBUPROFEN
     Indication: Headache
  16. TORADOL [Concomitant]
     Active Substance: KETOROLAC TROMETHAMINE
     Indication: Headache
  17. BENADRYL [Concomitant]
     Active Substance: DIPHENHYDRAMINE HYDROCHLORIDE
     Indication: Headache

REACTIONS (9)
  - Infusion site cellulitis [Unknown]
  - Infusion site pain [Recovered/Resolved]
  - Infusion site erythema [Recovered/Resolved]
  - Infusion site swelling [Recovered/Resolved]
  - Headache [Not Recovered/Not Resolved]
  - Nausea [Not Recovered/Not Resolved]
  - Vomiting [Not Recovered/Not Resolved]
  - Therapy non-responder [Unknown]
  - Product dose omission issue [Recovered/Resolved]

NARRATIVE: CASE EVENT DATE: 20240821
